FAERS Safety Report 9917410 (Version 1)
Quarter: 2014Q1

REPORT INFORMATION
  Report Type: Spontaneous
  Country: US (occurrence: US)
  Receive Date: 20140221
  Receipt Date: 20140221
  Transmission Date: 20141002
  Serious: No
  Sender: FDA-Public Use
  Company Number: US-PFIZER INC-2014049750

PATIENT
  Age: 49 Year
  Sex: Male
  Weight: 68.03 kg

DRUGS (3)
  1. CHANTIX [Suspect]
     Indication: SMOKING CESSATION THERAPY
     Dosage: 0.5 MG, 1X/DAY
     Dates: start: 20140218
  2. QUETIAPINE FUMARATE [Concomitant]
     Indication: BIPOLAR DISORDER
     Dosage: 300 MG, DAILY
  3. OXCARBAZEPINE [Concomitant]
     Indication: ANXIETY
     Dosage: 150 MG, 2X/DAY

REACTIONS (3)
  - Nausea [Recovered/Resolved]
  - Fatigue [Unknown]
  - Dizziness [Unknown]
